FAERS Safety Report 4449184-X (Version None)
Quarter: 2004Q3

REPORT INFORMATION
  Report Type: 
  Country: None (occurrence: None)
  Receive Date: 20040910
  Receipt Date: 20040830
  Transmission Date: 20050211
  Serious: No
  Sender: FDA-Public Use
  Company Number: 04H-163-0272010-00

PATIENT
  Age: 35 Year
  Sex: Female

DRUGS (4)
  1. MAGNESIUM SULFATE [Suspect]
     Indication: TOCOLYSIS
     Dosage: 4 GM, ONCE, INTRAVENOUS
     Route: 042
  2. ANTIBIOTICS [Concomitant]
  3. BETAMETHASONE [Concomitant]
  4. FUROSEMIDE [Concomitant]

REACTIONS (6)
  - CAESAREAN SECTION [None]
  - DRUG EXPOSURE DURING PREGNANCY [None]
  - HYPOCALCAEMIA [None]
  - JOINT CONTRACTURE [None]
  - PULMONARY OEDEMA [None]
  - THERAPEUTIC AGENT TOXICITY [None]
